FAERS Safety Report 23141356 (Version 2)
Quarter: 2023Q4

REPORT INFORMATION
  Report Type: Report from Study
  Country: US (occurrence: US)
  Receive Date: 20231103
  Receipt Date: 20231117
  Transmission Date: 20240109
  Serious: Yes (Other)
  Sender: FDA-Public Use
  Company Number: US-JNJFOC-20231065312

PATIENT
  Age: 71 Year
  Sex: Female

DRUGS (2)
  1. SPRAVATO [Suspect]
     Active Substance: ESKETAMINE
     Indication: Depression
     Dosage: ^28 MG, 2 TOTAL DOSES^
     Dates: start: 20231010, end: 20231011
  2. SPRAVATO [Suspect]
     Active Substance: ESKETAMINE
     Dosage: ^56 MG, 2 TOTAL DOSES^
     Dates: start: 20231016, end: 20231020

REACTIONS (6)
  - Atrial fibrillation [Unknown]
  - Irritable bowel syndrome [Recovering/Resolving]
  - Cystitis interstitial [Recovering/Resolving]
  - Insomnia [Recovered/Resolved]
  - Anxiety [Recovered/Resolved]
  - Depression [Unknown]

NARRATIVE: CASE EVENT DATE: 20231001
